FAERS Safety Report 6230931-1 (Version None)
Quarter: 2009Q2

REPORT INFORMATION
  Report Type: 
  Country: None (occurrence: None)
  Receive Date: 20090616
  Receipt Date: 20090612
  Transmission Date: 20091009
  Serious: Yes (Life-Threatening, Other)
  Sender: FDA-Public Use
  Company Number: PHEH2009US06148

PATIENT
  Sex: Female

DRUGS (1)
  1. GLEEVEC [Suspect]
     Dosage: UNK, UNK

REACTIONS (3)
  - ABDOMINAL PAIN [None]
  - INTESTINAL ISCHAEMIA [None]
  - TERMINAL STATE [None]
